FAERS Safety Report 16767623 (Version 1)
Quarter: 2019Q3

REPORT INFORMATION
  Report Type: Spontaneous
  Country: US (occurrence: US)
  Receive Date: 20190829
  Receipt Date: 20190829
  Transmission Date: 20191005
  Serious: No
  Sender: FDA-Public Use
  Company Number: None

PATIENT
  Age: 58 Year
  Sex: Male
  Weight: 81 kg

DRUGS (4)
  1. KRATOM CAPSULES [Suspect]
     Active Substance: HERBALS\MITRAGYNINE
     Indication: ANXIETY
     Dosage: ?          QUANTITY:3 CAPSULE(S);?
     Route: 048
     Dates: start: 20190401, end: 20190815
  2. ACE [Concomitant]
  3. KRATOM CAPSULES [Suspect]
     Active Substance: HERBALS\MITRAGYNINE
     Indication: DEPRESSION
     Dosage: ?          QUANTITY:3 CAPSULE(S);?
     Route: 048
     Dates: start: 20190401, end: 20190815
  4. LEXIPRO [Concomitant]

REACTIONS (10)
  - Withdrawal syndrome [None]
  - Decreased appetite [None]
  - Hallucination [None]
  - Psychotic disorder [None]
  - Depression [None]
  - Amnesia [None]
  - Insomnia [None]
  - Mood swings [None]
  - Vomiting [None]
  - Muscle twitching [None]

NARRATIVE: CASE EVENT DATE: 20190815
